FAERS Safety Report 7779363-5 (Version None)
Quarter: 2011Q3

REPORT INFORMATION
  Report Type: 
  Country: None (occurrence: None)
  Receive Date: 20110927
  Receipt Date: 20110401
  Transmission Date: 20111222
  Serious: Yes (Hospitalization, Other)
  Sender: FDA-Public Use
  Company Number: BE-BIOGENIDEC-2011BI005660

PATIENT
  Age: 28 Year
  Sex: Female

DRUGS (2)
  1. CLONAZEPAM [Concomitant]
  2. TYSABRI [Suspect]
     Indication: RELAPSING-REMITTING MULTIPLE SCLEROSIS
     Route: 042
     Dates: start: 20090820

REACTIONS (2)
  - THROMBOLYSIS [None]
  - VENOUS STENOSIS [None]
